FAERS Safety Report 5973903-4 (Version None)
Quarter: 2008Q4

REPORT INFORMATION
  Report Type: 
  Country: None (occurrence: None)
  Receive Date: 20081125
  Receipt Date: 20071029
  Transmission Date: 20090506
  Serious: Yes (Hospitalization)
  Sender: FDA-Public Use
  Company Number: 1000001764

PATIENT
  Age: 61 Year
  Sex: Female

DRUGS (5)
  1. CITALOPRAM HYDROBROMIDE [Suspect]
     Indication: DEPRESSION
     Dosage: 10 MG (10 MG, 1 IN 1 D),ORAL
     Route: 048
  2. ACTIVELLE [Suspect]
     Dosage: 1 DOSAGE FORMS (1 DOSAGE FORMS,  1 IN 1 D), ORAL
     Route: 048
  3. ACETAMINOPHEN [Suspect]
     Dosage: 1500 MG (500 MG, 3 IN 1 D), ORAL
     Route: 048
  4. PARALGIN FORTE [Suspect]
     Dosage: LESS THAN 3 TABLETS DAILY,ORAL
     Route: 048
  5. ALCOHOL [Suspect]

REACTIONS (7)
  - ALANINE AMINOTRANSFERASE INCREASED [None]
  - ALCOHOL USE [None]
  - ASPARTATE AMINOTRANSFERASE INCREASED [None]
  - BLOOD CREATININE INCREASED [None]
  - DEHYDRATION [None]
  - HEPATOTOXICITY [None]
  - VOMITING [None]
